FAERS Safety Report 15065136 (Version 1)
Quarter: 2018Q2

REPORT INFORMATION
  Report Type: Spontaneous
  Country: JP (occurrence: JP)
  Receive Date: 20180626
  Receipt Date: 20180626
  Transmission Date: 20180711
  Serious: Yes (Hospitalization, Congenital Anomaly)
  Sender: FDA-Public Use
  Company Number: JP-ASTELLAS-2018JP011814

PATIENT
  Age: 0 Day
  Sex: Male

DRUGS (4)
  1. PROGRAF [Suspect]
     Active Substance: TACROLIMUS\TACROLIMUS ANHYDROUS
     Indication: FOETAL EXPOSURE DURING PREGNANCY
     Route: 064
     Dates: start: 2008
  2. MEDROL [Suspect]
     Active Substance: METHYLPREDNISOLONE
     Indication: FOETAL EXPOSURE DURING PREGNANCY
     Route: 064
     Dates: start: 2008
  3. SELBEX [Concomitant]
     Active Substance: TEPRENONE
     Indication: FOETAL EXPOSURE DURING PREGNANCY
     Dosage: 0.5 G, TWICE DAILY
     Route: 064
     Dates: start: 2008
  4. BREDININ [Suspect]
     Active Substance: MIZORIBINE
     Indication: FOETAL EXPOSURE DURING PREGNANCY
     Route: 064
     Dates: start: 2008

REACTIONS (1)
  - Low birth weight baby [Recovered/Resolved]

NARRATIVE: CASE EVENT DATE: 20090528
